FAERS Safety Report 4548493-3 (Version None)
Quarter: 2005Q1

REPORT INFORMATION
  Report Type: 
  Country: None (occurrence: None)
  Receive Date: 20050110
  Receipt Date: 20040223
  Transmission Date: 20050727
  Serious: Yes (Hospitalization)
  Sender: FDA-Public Use
  Company Number: FR-GLAXOSMITHKLINE-B0324964A

PATIENT
  Age: 25 Year
  Sex: Female
  Weight: 55 kg

DRUGS (3)
  1. COMBIVIR [Suspect]
     Dosage: 1UNIT TWICE PER DAY
     Route: 048
     Dates: start: 20031222, end: 20040103
  2. VIRACEPT [Suspect]
     Dosage: 5UNIT TWICE PER DAY
     Route: 048
     Dates: start: 20031222, end: 20040103
  3. SEROPRAM [Concomitant]
     Route: 048
     Dates: start: 20031015, end: 20040103

REACTIONS (6)
  - DIARRHOEA [None]
  - EOSINOPHILIA [None]
  - HEPATITIS [None]
  - LYMPHOPENIA [None]
  - THROMBOCYTOPENIA [None]
  - VOMITING [None]
